FAERS Safety Report 25817503 (Version 2)
Quarter: 2025Q4

REPORT INFORMATION
  Report Type: Spontaneous
  Country: GB (occurrence: GB)
  Receive Date: 20250918
  Receipt Date: 20251009
  Transmission Date: 20260118
  Serious: Yes (Death, Hospitalization)
  Sender: TEVA
  Company Number: GB-TEVA-VS-3371900

PATIENT
  Age: 84 Year
  Sex: Male

DRUGS (9)
  1. PREDNISOLONE [Suspect]
     Active Substance: PREDNISOLONE
     Indication: Myocarditis-myositis-myasthenia gravis overlap syndrome
     Route: 048
  2. MYCOPHENOLATE MOFETIL [Suspect]
     Active Substance: MYCOPHENOLATE MOFETIL
     Indication: Myocarditis-myositis-myasthenia gravis overlap syndrome
     Route: 065
  3. METHYLPREDNISOLONE [Suspect]
     Active Substance: METHYLPREDNISOLONE
     Indication: Myocarditis-myositis-myasthenia gravis overlap syndrome
     Route: 042
  4. TACROLIMUS [Suspect]
     Active Substance: TACROLIMUS
     Indication: Myocarditis-myositis-myasthenia gravis overlap syndrome
     Route: 065
  5. PEMBROLIZUMAB [Suspect]
     Active Substance: PEMBROLIZUMAB
     Indication: Metastatic malignant melanoma
     Route: 065
  6. TOCILIZUMAB [Suspect]
     Active Substance: TOCILIZUMAB
     Indication: Myocarditis-myositis-myasthenia gravis overlap syndrome
     Route: 065
  7. SULFAMETHOXAZOLE\TRIMETHOPRIM [Concomitant]
     Active Substance: SULFAMETHOXAZOLE\TRIMETHOPRIM
     Indication: Antibiotic prophylaxis
     Route: 065
  8. IMMUNE GLOBULIN NOS [Suspect]
     Active Substance: IMMUNE GLOBULIN NOS
     Indication: Myocarditis-myositis-myasthenia gravis overlap syndrome
     Route: 042
  9. PYRIDOSTIGMINE [Suspect]
     Active Substance: PYRIDOSTIGMINE
     Indication: Myocarditis-myositis-myasthenia gravis overlap syndrome
     Dosage: TIME INTERVAL: 0.33333333 DAYS
     Route: 065

REACTIONS (4)
  - Myocarditis-myositis-myasthenia gravis overlap syndrome [Fatal]
  - Atrial fibrillation [Unknown]
  - Drug ineffective [Fatal]
  - Agitation [Unknown]
